FAERS Safety Report 9439743 (Version 1)
Quarter: 2013Q3

REPORT INFORMATION
  Report Type: Spontaneous
  Country: US (occurrence: None)
  Receive Date: 20130801
  Receipt Date: 20130801
  Transmission Date: 20140515
  Serious: No
  Sender: FDA-Public Use
  Company Number: None

PATIENT
  Sex: 0

DRUGS (1)
  1. WELCHOL [Suspect]
     Indication: BLOOD CHOLESTEROL
     Dosage: 1 PACKET 1 DAILY MOUTH
     Route: 048
     Dates: start: 20130629, end: 20130718

REACTIONS (3)
  - Muscle spasms [None]
  - Musculoskeletal pain [None]
  - Somnolence [None]
